FAERS Safety Report 7824792-4 (Version None)
Quarter: 2011Q4

REPORT INFORMATION
  Report Type: 
  Country: None (occurrence: None)
  Receive Date: 20111019
  Receipt Date: 20110404
  Transmission Date: 20120403
  Serious: No
  Sender: FDA-Public Use
  Company Number: US-BRISTOL-MYERS SQUIBB COMPANY-15509946

PATIENT
  Age: 61 Year
  Sex: Male
  Weight: 98 kg

DRUGS (2)
  1. AVALIDE [Suspect]
     Indication: HYPERTENSION
     Dosage: 1DF=300/25MG.
  2. ZOCOR [Concomitant]

REACTIONS (3)
  - DRUG INEFFECTIVE [None]
  - BLOOD PRESSURE INADEQUATELY CONTROLLED [None]
  - HYPOTENSION [None]
